FAERS Safety Report 5451428-2 (Version None)
Quarter: 2007Q3

REPORT INFORMATION
  Report Type: 
  Country: None (occurrence: None)
  Receive Date: 20070913
  Receipt Date: 20070906
  Transmission Date: 20080115
  Serious: Yes (Other)
  Sender: FDA-Public Use
  Company Number: B0486713A

PATIENT
  Age: 3 Year
  Sex: Male

DRUGS (1)
  1. AMOXICILLIN + CLAVULANATE POTASSIUM [Suspect]
     Indication: TONSILLITIS
     Dosage: 5ML TWICE PER DAY
     Route: 048
     Dates: start: 20070821, end: 20070822

REACTIONS (1)
  - EPIDERMAL NECROSIS [None]
